FAERS Safety Report 9505822 (Version 1)
Quarter: 2013Q1

REPORT INFORMATION
  Report Type: Spontaneous
  Country: PE (occurrence: None)
  Receive Date: 20130214
  Receipt Date: 20130214
  Transmission Date: 20140127
  Serious: Yes (Disabling, Other)
  Sender: FDA-Public Use
  Company Number: 1207USA011992

PATIENT
  Sex: Male

DRUGS (1)
  1. PROPECIA [Suspect]
     Dosage: , ORAL

REACTIONS (7)
  - Libido decreased [None]
  - Male orgasmic disorder [None]
  - Depression [None]
  - Anxiety [None]
  - Cognitive disorder [None]
  - Erectile dysfunction [None]
  - Genital disorder male [None]
